FAERS Safety Report 6829809-1 (Version None)
Quarter: 2010Q3

REPORT INFORMATION
  Report Type: 
  Country: None (occurrence: None)
  Receive Date: 20100709
  Receipt Date: 20100517
  Transmission Date: 20110219
  Serious: Yes (Other)
  Sender: FDA-Public Use
  Company Number: US-PFIZER INC-2007008848

PATIENT
  Sex: Male
  Weight: 90.703 kg

DRUGS (9)
  1. CHANTIX [Suspect]
     Indication: SMOKING CESSATION THERAPY
     Dosage: 1 MG, UNK
     Route: 048
     Dates: start: 20070129
  2. CHANTIX [Suspect]
     Dosage: 1 MG, 2X/DAY
     Dates: start: 20090101
  3. MS CONTIN [Concomitant]
     Dosage: UNK
  4. ROXANOL [Concomitant]
     Dosage: UNK
  5. KLONOPIN [Concomitant]
     Dosage: UNK
  6. REGLAN [Concomitant]
     Indication: ABDOMINAL DISCOMFORT
     Dosage: UNK
     Route: 048
  7. STOOL SOFTENER [Concomitant]
     Dosage: UNK
  8. NEXIUM [Concomitant]
     Indication: ABDOMINAL DISCOMFORT
     Dosage: UNK
     Route: 048
  9. DILAUDID [Concomitant]
     Indication: PAIN
     Dosage: UNK
     Route: 048

REACTIONS (10)
  - ANXIETY [None]
  - COLD SWEAT [None]
  - CONFUSIONAL STATE [None]
  - CONSTIPATION [None]
  - DISORIENTATION [None]
  - FLATULENCE [None]
  - MALAISE [None]
  - NAUSEA [None]
  - NIGHTMARE [None]
  - SLEEP DISORDER [None]
